FAERS Safety Report 7321072-0 (Version None)
Quarter: 2011Q1

REPORT INFORMATION
  Report Type: 
  Country: None (occurrence: None)
  Receive Date: 20110223
  Receipt Date: 20110223
  Transmission Date: 20110831
  Serious: No
  Sender: FDA-Public Use
  Company Number: None

PATIENT
  Age: 41 Year
  Sex: Female
  Weight: 56 kg

DRUGS (2)
  1. QUASENSE [Suspect]
     Indication: DYSMENORRHOEA
     Dosage: 1 TABLET DAILY PO
     Route: 048
     Dates: start: 20110106, end: 20110217
  2. QUASENSE [Suspect]
     Indication: CONTRACEPTION
     Dosage: 1 TABLET DAILY PO
     Route: 048
     Dates: start: 20110106, end: 20110217

REACTIONS (2)
  - PRODUCT SUBSTITUTION ISSUE [None]
  - METRORRHAGIA [None]
